FAERS Safety Report 11754744 (Version 1)
Quarter: 2015Q4

REPORT INFORMATION
  Report Type: Spontaneous
  Country: US (occurrence: US)
  Receive Date: 20151119
  Receipt Date: 20151119
  Transmission Date: 20160304
  Serious: No
  Sender: FDA-Public Use
  Company Number: US-HERITAGE PHARMACEUTICALS-2015HTG00032

PATIENT
  Sex: Female
  Weight: 118.37 kg

DRUGS (2)
  1. TETRACYCLINE HYDROCHLORIDE. [Suspect]
     Active Substance: TETRACYCLINE HYDROCHLORIDE
     Indication: FURUNCLE
     Dosage: UNK, 2X/DAY
  2. UNSPECIFIED BLOOD PRESSURE MEDICATION(S) [Concomitant]

REACTIONS (2)
  - Hypersensitivity [Recovered/Resolved]
  - Rash generalised [None]
